FAERS Safety Report 4537216-X (Version None)
Quarter: 2004Q4

REPORT INFORMATION
  Report Type: 
  Country: None (occurrence: None)
  Receive Date: 20041223
  Receipt Date: 20041124
  Transmission Date: 20050328
  Serious: Yes (Hospitalization)
  Sender: FDA-Public Use
  Company Number: PHNU2004DE04014

PATIENT
  Sex: Female

DRUGS (1)
  1. LOCOL [Suspect]
     Dosage: 80 MG, QD
     Dates: start: 19960901

REACTIONS (2)
  - DEPRESSION [None]
  - MOVEMENT DISORDER [None]
